FAERS Safety Report 6292788-2 (Version None)
Quarter: 2009Q3

REPORT INFORMATION
  Report Type: 
  Country: None (occurrence: None)
  Receive Date: 20090731
  Receipt Date: 20090723
  Transmission Date: 20100115
  Serious: Yes (Other)
  Sender: FDA-Public Use
  Company Number: JP-PFIZER INC-2009238582

PATIENT

DRUGS (4)
  1. NORVASC [Suspect]
     Dosage: UNK
     Route: 048
  2. DILTIAZEM HYDROCHLORIDE [Concomitant]
     Dosage: UNK
     Route: 048
  3. ITOROL [Concomitant]
     Dosage: UNK
     Route: 048
  4. HALCION [Concomitant]
     Dosage: UNK
     Route: 048

REACTIONS (2)
  - PLATELET COUNT DECREASED [None]
  - WHITE BLOOD CELL COUNT DECREASED [None]
